FAERS Safety Report 5464468-4 (Version None)
Quarter: 2007Q3

REPORT INFORMATION
  Report Type: 
  Country: None (occurrence: None)
  Receive Date: 20070921
  Receipt Date: 20070910
  Transmission Date: 20080115
  Serious: Yes (Other)
  Sender: FDA-Public Use
  Company Number: US-SHR-US-2007-019456

PATIENT
  Age: 54 Year
  Sex: Male
  Weight: 105.22 kg

DRUGS (3)
  1. BETASERON [Suspect]
     Indication: RELAPSING-REMITTING MULTIPLE SCLEROSIS
     Dosage: 8 MIU, EVERY 2D
     Route: 058
     Dates: start: 20061101
  2. VICODIN ES [Concomitant]
     Indication: NECK PAIN
     Dosage: UNK, AS REQ'D
     Route: 048
  3. EFFEXOR [Concomitant]
     Indication: DEPRESSION
     Dates: start: 20070601

REACTIONS (6)
  - CONSTIPATION [None]
  - HAEMORRHAGE [None]
  - PRURITUS [None]
  - RHINORRHOEA [None]
  - VISION BLURRED [None]
  - VISUAL ACUITY REDUCED [None]
